FAERS Safety Report 22655521 (Version 1)
Quarter: 2023Q2

REPORT INFORMATION
  Report Type: Spontaneous
  Country: US (occurrence: None)
  Receive Date: 20230629
  Receipt Date: 20230629
  Transmission Date: 20230722
  Serious: No
  Sender: FDA-Public Use
  Company Number: None

PATIENT
  Sex: Female

DRUGS (17)
  1. LETAIRIS [Suspect]
     Active Substance: AMBRISENTAN
     Indication: Pulmonary arterial hypertension
     Dosage: FREQUENCY : DAILY;?
     Route: 048
  2. MIRALAX [Concomitant]
     Active Substance: POLYETHYLENE GLYCOL 3350
  3. XOPENEX HFA [Concomitant]
     Active Substance: LEVALBUTEROL TARTRATE
  4. IBUPROFEN [Concomitant]
     Active Substance: IBUPROFEN
  5. SINGULAIR [Concomitant]
     Active Substance: MONTELUKAST SODIUM
  6. MOMETASONE FUROATE [Concomitant]
     Active Substance: MOMETASONE FUROATE
  7. VITAMIN C [Concomitant]
     Active Substance: ASCORBIC ACID
  8. XOPENEX [Concomitant]
     Active Substance: LEVALBUTEROL HYDROCHLORIDE
  9. LORATADINE [Concomitant]
     Active Substance: LORATADINE
  10. IPRATROPIUM BROMIDE [Concomitant]
     Active Substance: IPRATROPIUM BROMIDE\IPRATROPIUM BROMIDE ANHYDROUS
  11. SYMBICORT [Concomitant]
     Active Substance: BUDESONIDE\FORMOTEROL FUMARATE DIHYDRATE
  12. CALCIUM 1200 [Concomitant]
  13. KETOCONAZOLE [Concomitant]
     Active Substance: KETOCONAZOLE
  14. FINACEA [Concomitant]
     Active Substance: AZELAIC ACID
  15. CALCIUM\VITAMIN D [Concomitant]
     Active Substance: CALCIUM\VITAMIN D
  16. CLINDAMYCIN HYDROCHLORIDE [Concomitant]
     Active Substance: CLINDAMYCIN HYDROCHLORIDE
  17. VITAMIN C [Concomitant]
     Active Substance: ASCORBIC ACID

REACTIONS (4)
  - Spinal osteoarthritis [None]
  - Intervertebral disc protrusion [None]
  - Rosacea [None]
  - Eczema [None]
